FAERS Safety Report 6039321-8 (Version None)
Quarter: 2009Q1

REPORT INFORMATION
  Report Type: 
  Country: None (occurrence: None)
  Receive Date: 20090115
  Receipt Date: 20090114
  Transmission Date: 20090719
  Serious: No
  Sender: FDA-Public Use
  Company Number: US-B.I. PHARMACEUTICALS,INC./RIDGEFIELD-2008-BP-16789BP

PATIENT
  Sex: Female

DRUGS (2)
  1. SPIRIVA [Suspect]
     Indication: COUGH
     Dosage: 18MCG
     Route: 055
     Dates: start: 20050101
  2. ADVAIR DISKUS 100/50 [Concomitant]

REACTIONS (1)
  - DYSPHONIA [None]
